FAERS Safety Report 5807130-8 (Version None)
Quarter: 2008Q3

REPORT INFORMATION
  Report Type: 
  Country: None (occurrence: None)
  Receive Date: 20080711
  Receipt Date: 20080628
  Transmission Date: 20090109
  Serious: Yes (Hospitalization)
  Sender: FDA-Public Use
  Company Number: PT-WATSON-2008-03973

PATIENT
  Age: 77 Year
  Sex: Female

DRUGS (3)
  1. FORTAMET EXTENDED RELEASE (WATSON LABORATORIES) [Suspect]
     Indication: TYPE 2 DIABETES MELLITUS
     Dosage: 3 G, DAILY
     Route: 065
  2. PERINDOPRIL ERBUMINE [Concomitant]
     Indication: HYPERTENSION
     Dosage: UNK
  3. ASPIRIN [Concomitant]
     Indication: HYPERTENSION

REACTIONS (8)
  - ABDOMINAL PAIN [None]
  - BLOOD CREATININE INCREASED [None]
  - BLOOD UREA INCREASED [None]
  - HYPERKALAEMIA [None]
  - LACTIC ACIDOSIS [None]
  - LEUKOCYTOSIS [None]
  - PSYCHOMOTOR HYPERACTIVITY [None]
  - VOMITING [None]
